FAERS Safety Report 5866654-8 (Version None)
Quarter: 2008Q3

REPORT INFORMATION
  Report Type: 
  Country: None (occurrence: None)
  Receive Date: 20080902
  Receipt Date: 20080901
  Transmission Date: 20090109
  Serious: Yes (Other)
  Sender: FDA-Public Use
  Company Number: PHHO2002US07486

PATIENT
  Sex: Male
  Weight: 131 kg

DRUGS (3)
  1. TRILEPTAL [Suspect]
     Indication: DIABETIC NEUROPATHY
     Dosage: 300-1800MG/DAY
     Route: 048
     Dates: start: 20020824, end: 20021002
  2. PEPCID [Concomitant]
  3. DEXAMETHASONE TAB [Concomitant]

REACTIONS (4)
  - DISCOMFORT [None]
  - ERYTHEMA MULTIFORME [None]
  - RASH [None]
  - SKIN LESION [None]
